FAERS Safety Report 7821654-3 (Version None)
Quarter: 2011Q4

REPORT INFORMATION
  Report Type: 
  Country: None (occurrence: None)
  Receive Date: 20111018
  Receipt Date: 20110824
  Transmission Date: 20120403
  Serious: No
  Sender: FDA-Public Use
  Company Number: US-BAUSCH-2011BL005609

PATIENT
  Sex: Female

DRUGS (1)
  1. LATANOPROST [Suspect]
     Indication: PRODUCT USED FOR UNKNOWN INDICATION
     Route: 047
     Dates: start: 20110101

REACTIONS (1)
  - BLISTER [None]
